FAERS Safety Report 10049521 (Version 1)
Quarter: 2014Q2

REPORT INFORMATION
  Report Type: Spontaneous
  Country: FR (occurrence: FR)
  Receive Date: 20140401
  Receipt Date: 20140401
  Transmission Date: 20141212
  Serious: Yes (Congenital Anomaly, Other)
  Sender: FDA-Public Use
  Company Number: FR-ELI_LILLY_AND_COMPANY-FR201403007946

PATIENT
  Sex: Female
  Weight: 2.54 kg

DRUGS (6)
  1. ZYPREXA [Suspect]
     Indication: PRODUCT USED FOR UNKNOWN INDICATION
     Dosage: 15 MG, QD
     Route: 064
  2. ZYPREXA [Suspect]
     Indication: PRODUCT USED FOR UNKNOWN INDICATION
     Dosage: 15 MG, QD
     Route: 064
  3. EFFEXOR [Suspect]
     Indication: PRODUCT USED FOR UNKNOWN INDICATION
     Dosage: 160 MG, QD
     Route: 064
  4. EFFEXOR [Suspect]
     Indication: PRODUCT USED FOR UNKNOWN INDICATION
     Dosage: 160 MG, QD
     Route: 064
  5. LEVOTHYROX [Concomitant]
     Indication: PRODUCT USED FOR UNKNOWN INDICATION
     Dosage: 200 UG, QD
     Route: 064
  6. LEVOTHYROX [Concomitant]
     Indication: PRODUCT USED FOR UNKNOWN INDICATION
     Dosage: 200 UG, QD
     Route: 064

REACTIONS (15)
  - Congenital spinal fusion [Not Recovered/Not Resolved]
  - Congenital claw toe [Not Recovered/Not Resolved]
  - Congenital anomaly [Not Recovered/Not Resolved]
  - Joint dislocation [Not Recovered/Not Resolved]
  - Congenital foot malformation [Not Recovered/Not Resolved]
  - Bone atrophy [Not Recovered/Not Resolved]
  - Congenital genital malformation female [Not Recovered/Not Resolved]
  - Retrognathia [Not Recovered/Not Resolved]
  - Congenital multiplex arthrogryposis [Not Recovered/Not Resolved]
  - Pelvic deformity [Not Recovered/Not Resolved]
  - High arched palate [Not Recovered/Not Resolved]
  - Mucopolysaccharidosis [Unknown]
  - Foetal exposure during pregnancy [Not Recovered/Not Resolved]
  - Blood lactic acid increased [Unknown]
  - Blood pyruvic acid increased [Unknown]
